FAERS Safety Report 8558686 (Version 3)
Quarter: 2013Q4

REPORT INFORMATION
  Report Type: Spontaneous
  Country: US (occurrence: US)
  Receive Date: 20120511
  Receipt Date: 20131118
  Transmission Date: 20140711
  Serious: No
  Sender: FDA-Public Use
  Company Number: US-JNJFOC-20120506207

PATIENT
  Age: 38 Year
  Sex: Female
  Weight: 58.97 kg

DRUGS (5)
  1. DURAGESIC [Suspect]
     Indication: PAIN
     Route: 062
     Dates: start: 2011
  2. AMBIEN [Concomitant]
     Indication: INSOMNIA
     Route: 048
     Dates: start: 2002
  3. NORCO [Concomitant]
     Indication: PAIN
     Dosage: EVERY 4-6 HOUR
     Route: 048
     Dates: start: 2002
  4. PHENERGAN [Concomitant]
     Dosage: AS NEEDED
     Route: 048
     Dates: start: 2007
  5. AMBIEN CR [Concomitant]
     Indication: INSOMNIA
     Dosage: AS NEEDED
     Route: 048
     Dates: start: 2002

REACTIONS (7)
  - Product quality issue [Recovered/Resolved]
  - Wrong technique in drug usage process [Recovered/Resolved]
  - Product quality issue [Recovered/Resolved]
  - Pain [Recovered/Resolved]
  - Myalgia [Recovered/Resolved]
  - Anxiety [Recovered/Resolved]
  - Withdrawal syndrome [Recovered/Resolved]
